FAERS Safety Report 4529403-1 (Version None)
Quarter: 2004Q4

REPORT INFORMATION
  Report Type: 
  Country: None (occurrence: None)
  Receive Date: 20041216
  Receipt Date: 20041207
  Transmission Date: 20050328
  Serious: Yes (Hospitalization)
  Sender: FDA-Public Use
  Company Number: GXKR2004LT00481

PATIENT
  Age: 28 Year
  Weight: 70 kg

DRUGS (3)
  1. CEFUROXIME 'BIOCHEMIE' (NGX) (CEFUROXIME) [Suspect]
     Indication: ENDOCARDITIS STAPHYLOCOCCAL
     Dosage: 4.5 G/DAY, INTRAVENOUS
     Route: 042
     Dates: start: 20041124, end: 20041125
  2. METRONIDAZOLE [Concomitant]
  3. FUROSEMIDE [Concomitant]

REACTIONS (5)
  - COUGH [None]
  - HEADACHE [None]
  - PARAESTHESIA [None]
  - THROAT IRRITATION [None]
  - URTICARIA [None]
